FAERS Safety Report 5389549-5 (Version None)
Quarter: 2007Q3

REPORT INFORMATION
  Report Type: 
  Country: None (occurrence: None)
  Receive Date: 20070717
  Receipt Date: 20070705
  Transmission Date: 20080115
  Serious: Yes (Hospitalization)
  Sender: FDA-Public Use
  Company Number: JP-PFIZER INC-2007039445

PATIENT
  Sex: Female
  Weight: 47.4 kg

DRUGS (4)
  1. SU-011,248 [Suspect]
     Indication: RENAL CELL CARCINOMA STAGE UNSPECIFIED
     Dosage: DAILY DOSE:50MG
     Route: 048
  2. SU-011,248 [Suspect]
     Route: 048
  3. CANDESARTAN CILEXETIL [Concomitant]
     Route: 048
  4. LIOTHYRONINE SODIUM [Concomitant]
     Route: 048
     Dates: start: 20070418

REACTIONS (2)
  - HYPERTENSION [None]
  - PROTEINURIA [None]
